FAERS Safety Report 8112568-2 (Version None)
Quarter: 2012Q1

REPORT INFORMATION
  Report Type: 
  Country: None (occurrence: None)
  Receive Date: 20120203
  Receipt Date: 20120125
  Transmission Date: 20120608
  Serious: Yes (Death, Hospitalization, Other)
  Sender: FDA-Public Use
  Company Number: JP-ROCHE-1005535

PATIENT
  Age: 40 Year

DRUGS (3)
  1. STEROID (NAME UNKNOWN) [Concomitant]
     Route: 048
  2. GANCICLOVIR [Suspect]
     Indication: PRODUCT USED FOR UNKNOWN INDICATION
     Route: 041
     Dates: start: 20110928, end: 20111002
  3. ALPROSTADIL [Suspect]
     Indication: PRODUCT USED FOR UNKNOWN INDICATION
     Route: 051
     Dates: start: 20110928

REACTIONS (1)
  - INTERSTITIAL LUNG DISEASE [None]
